FAERS Safety Report 11689663 (Version 1)
Quarter: 2015Q4

REPORT INFORMATION
  Report Type: Spontaneous
  Country: US (occurrence: US)
  Receive Date: 20151102
  Receipt Date: 20151102
  Transmission Date: 20160304
  Serious: No
  Sender: FDA-Public Use
  Company Number: US-BAYER-2015-455669

PATIENT

DRUGS (2)
  1. ALEVE [Suspect]
     Active Substance: NAPROXEN SODIUM
     Indication: INJURY
     Dosage: 2 DF, ONCE
     Route: 048
     Dates: start: 20151027, end: 20151027
  2. ALEVE [Suspect]
     Active Substance: NAPROXEN SODIUM
     Indication: INJURY
     Dosage: UNK

REACTIONS (1)
  - Product use issue [None]

NARRATIVE: CASE EVENT DATE: 20151027
